FAERS Safety Report 6375679-8 (Version None)
Quarter: 2009Q3

REPORT INFORMATION
  Report Type: 
  Country: None (occurrence: None)
  Receive Date: 20090921
  Receipt Date: 20090921
  Transmission Date: 20100115
  Serious: Yes (Hospitalization)
  Sender: FDA-Public Use
  Company Number: None

PATIENT
  Sex: Male
  Weight: 72.7 kg

DRUGS (16)
  1. BEVACIZUMAB GENENTECH [Suspect]
     Indication: GASTROOESOPHAGEAL CANCER
     Dosage: 565 MG EVERY 21 DAYS IV
     Route: 042
     Dates: start: 20090702, end: 20090903
  2. OXALIPLATIN [Suspect]
     Dosage: 140 MG EVERY 21 DAYS IV
     Route: 042
     Dates: start: 20090702, end: 20090903
  3. DOCETAXEL [Suspect]
     Indication: GASTROOESOPHAGEAL CANCER
     Dosage: 132 MG EVERY 21 DAYS IV
     Route: 042
     Dates: start: 20090702, end: 20090903
  4. PROCHLORPERAZINE [Concomitant]
  5. PERCOCET [Concomitant]
  6. PROMETHAZINE [Concomitant]
  7. LISINOPRIL AND HYDROCHLOROTHIAZIDE [Concomitant]
  8. FLOMAX [Concomitant]
  9. OMEPRAZOLE [Concomitant]
  10. SIMVASTATIN [Concomitant]
  11. METFORMIN HCL [Concomitant]
  12. MULTI-VITAMIN [Concomitant]
  13. SAW PALMETTO [Concomitant]
  14. DEXAMETHASONE 4MG TAB [Concomitant]
  15. EMEND [Concomitant]
  16. ODANSETRON HCL [Concomitant]

REACTIONS (13)
  - BLOOD ALBUMIN DECREASED [None]
  - BLOOD GLUCOSE INCREASED [None]
  - BLOOD POTASSIUM DECREASED [None]
  - BLOOD SODIUM DECREASED [None]
  - CHRONIC OBSTRUCTIVE PULMONARY DISEASE [None]
  - DECREASED APPETITE [None]
  - DEHYDRATION [None]
  - HYPOKALAEMIA [None]
  - HYPOTENSION [None]
  - NEUTROPHIL COUNT DECREASED [None]
  - RENAL FAILURE ACUTE [None]
  - SYNCOPE [None]
  - WHITE BLOOD CELL COUNT DECREASED [None]
